FAERS Safety Report 6298740-5 (Version None)
Quarter: 2009Q3

REPORT INFORMATION
  Report Type: 
  Country: None (occurrence: None)
  Receive Date: 20090806
  Receipt Date: 20090730
  Transmission Date: 20100115
  Serious: Yes (Hospitalization)
  Sender: FDA-Public Use
  Company Number: US-BIOGENIDEC-2009BI013155

PATIENT
  Age: 26 Year
  Sex: Female

DRUGS (4)
  1. AVONEX [Suspect]
     Indication: MULTIPLE SCLEROSIS
     Route: 030
     Dates: start: 20080417, end: 20080720
  2. FELDENE [Concomitant]
  3. LORTAB [Concomitant]
  4. ALDOMET [Concomitant]

REACTIONS (3)
  - BREECH DELIVERY [None]
  - PRE-ECLAMPSIA [None]
  - PREGNANCY [None]
